FAERS Safety Report 10904994 (Version 1)
Quarter: 2015Q1

REPORT INFORMATION
  Report Type: Spontaneous
  Country: US (occurrence: None)
  Receive Date: 20150309
  Receipt Date: 20150309
  Transmission Date: 20150721
  Serious: Yes (Other)
  Sender: FDA-Public Use
  Company Number: None

PATIENT
  Age: 47 Year
  Sex: Male

DRUGS (1)
  1. TIVICAY [Suspect]
     Active Substance: DOLUTEGRAVIR SODIUM
     Indication: HIV INFECTION
     Dosage: STRENGTH: 50MG, DOSE FORM: ORAL, FREQUENCY:  QD, ROUTE: ORAL 047
     Route: 048

REACTIONS (2)
  - Rash [None]
  - Headache [None]

NARRATIVE: CASE EVENT DATE: 20150226
